FAERS Safety Report 16094101 (Version 1)
Quarter: 2019Q1

REPORT INFORMATION
  Report Type: Report from Study
  Country: PE (occurrence: PE)
  Receive Date: 20190320
  Receipt Date: 20190320
  Transmission Date: 20190418
  Serious: Yes (Disabling)
  Sender: FDA-Public Use
  Company Number: PE-B.I. PHARMACEUTICALS,INC./RIDGEFIELD-2019-BI-011718

PATIENT
  Age: 76 Year
  Sex: Male
  Weight: 80 kg

DRUGS (4)
  1. PRADAXA [Suspect]
     Active Substance: DABIGATRAN ETEXILATE MESYLATE
     Indication: ATRIAL FIBRILLATION
     Route: 048
     Dates: start: 20180601, end: 20190128
  2. PRADAXA [Suspect]
     Active Substance: DABIGATRAN ETEXILATE MESYLATE
     Route: 048
     Dates: start: 20190202
  3. MELOXICAM. [Concomitant]
     Active Substance: MELOXICAM
     Indication: POST HERPETIC NEURALGIA
     Route: 048
     Dates: start: 20190128, end: 20190201
  4. KETOROLACO [Concomitant]
     Indication: POST HERPETIC NEURALGIA
     Route: 060
     Dates: start: 20190128, end: 20190201

REACTIONS (1)
  - Transient ischaemic attack [Recovered/Resolved]

NARRATIVE: CASE EVENT DATE: 20190202
